FAERS Safety Report 5526710-0 (Version None)
Quarter: 2007Q4

REPORT INFORMATION
  Report Type: 
  Country: None (occurrence: None)
  Receive Date: 20071123
  Receipt Date: 20070214
  Transmission Date: 20080405
  Serious: Yes (Hospitalization)
  Sender: FDA-Public Use
  Company Number: 2007MP000078

PATIENT
  Age: 56 Year
  Sex: Female

DRUGS (5)
  1. GLIADEL [Suspect]
     Indication: GLIOBLASTOMA MULTIFORME
     Dosage: X1;ICER
     Dates: start: 20070123
  2. 06-BENZYLGUANINE (06BG) [Suspect]
     Indication: GLIOBLASTOMA MULTIFORME
     Dosage: 30 MG/M**2/QD;IV
     Route: 042
     Dates: start: 20070123, end: 20070128
  3. ZANTAC [Concomitant]
  4. OXYCODONE HCL [Concomitant]
  5. DECADRON TAPER [Concomitant]

REACTIONS (1)
  - POSTOPERATIVE WOUND INFECTION [None]
